FAERS Safety Report 13193904 (Version 3)
Quarter: 2017Q2

REPORT INFORMATION
  Report Type: Spontaneous
  Country: US (occurrence: US)
  Receive Date: 20170207
  Receipt Date: 20170420
  Transmission Date: 20170830
  Serious: Yes (Other)
  Sender: FDA-Public Use
  Company Number: US-009507513-1702USA002374

PATIENT
  Sex: Male

DRUGS (3)
  1. JANUVIA [Suspect]
     Active Substance: SITAGLIPTIN PHOSPHATE
     Indication: DIABETES MELLITUS
     Dosage: 50 MG, QD
     Route: 048
     Dates: start: 20161128, end: 20170113
  2. GLYBURIDE. [Concomitant]
     Active Substance: GLYBURIDE
  3. INSULIN [Concomitant]
     Active Substance: INSULIN NOS

REACTIONS (10)
  - Dehydration [Not Recovered/Not Resolved]
  - Skin exfoliation [Not Recovered/Not Resolved]
  - Stevens-Johnson syndrome [Unknown]
  - Skin wrinkling [Not Recovered/Not Resolved]
  - Skin haemorrhage [Not Recovered/Not Resolved]
  - Dry skin [Recovering/Resolving]
  - Sinusitis [Recovered/Resolved]
  - Hypoaesthesia [Recovering/Resolving]
  - Blister [Not Recovered/Not Resolved]
  - Peripheral swelling [Unknown]

NARRATIVE: CASE EVENT DATE: 2016
